FAERS Safety Report 13042549 (Version 1)
Quarter: 2016Q4

REPORT INFORMATION
  Report Type: Spontaneous
  Country: CN (occurrence: CN)
  Receive Date: 20161219
  Receipt Date: 20161219
  Transmission Date: 20170207
  Serious: Yes (Hospitalization, Other)
  Sender: FDA-Public Use
  Company Number: CN-ELI_LILLY_AND_COMPANY-CN201612004276

PATIENT
  Sex: Male

DRUGS (4)
  1. HUMALOG MIX75/25 [Suspect]
     Active Substance: INSULIN LISPRO
     Dosage: 40 U, EACH MORNING
     Route: 058
     Dates: end: 201506
  2. NOVORAPID [Concomitant]
     Active Substance: INSULIN ASPART
  3. HUMALOG MIX75/25 [Suspect]
     Active Substance: INSULIN LISPRO
     Indication: DIABETES MELLITUS
     Dosage: 50 U, EACH MORNING
     Route: 058
     Dates: start: 2012
  4. HUMALOG MIX50/50 [Suspect]
     Active Substance: INSULIN LISPRO
     Indication: DIABETES MELLITUS
     Dosage: 50 U, EACH MORNING
     Route: 058
     Dates: start: 201506

REACTIONS (3)
  - Blood glucose increased [Unknown]
  - Arteriosclerosis [Not Recovered/Not Resolved]
  - Blood glucose abnormal [Unknown]

NARRATIVE: CASE EVENT DATE: 20161124
